FAERS Safety Report 22179574 (Version 1)
Quarter: 2023Q2

REPORT INFORMATION
  Report Type: Spontaneous
  Country: GB (occurrence: GB)
  Receive Date: 20230406
  Receipt Date: 20230406
  Transmission Date: 20230722
  Serious: Yes (Other)
  Sender: FDA-Public Use
  Company Number: GB-MHRA-TPP29285950C7351448YC1652779588705

PATIENT
  Age: 73 Year
  Sex: Female
  Weight: 90 kg

DRUGS (19)
  1. GABAPENTIN [Suspect]
     Active Substance: GABAPENTIN
     Indication: Ill-defined disorder
     Dosage: UNK
     Route: 065
     Dates: start: 20220517
  2. GABAPENTIN [Suspect]
     Active Substance: GABAPENTIN
     Indication: Neuralgia
     Dosage: 300 MILLIGRAM
     Route: 065
     Dates: start: 20220216
  3. ASPIRIN [Concomitant]
     Active Substance: ASPIRIN
     Indication: Ill-defined disorder
     Dosage: 1 DOSAGE FORM, ONCE A DAY
     Route: 065
     Dates: start: 20220216
  4. BECLOMETHASONE DIPROPIONATE [Concomitant]
     Active Substance: BECLOMETHASONE DIPROPIONATE
     Indication: Ill-defined disorder
     Dosage: 2 DOSAGE FORM
     Route: 055
     Dates: start: 20220216
  5. BECLOMETHASONE DIPROPIONATE [Concomitant]
     Active Substance: BECLOMETHASONE DIPROPIONATE
     Indication: Steroid therapy
  6. BETAMETHASONE VALERATE [Concomitant]
     Active Substance: BETAMETHASONE VALERATE
     Indication: Ill-defined disorder
     Dosage: 1 DOSAGE FORM, TWO TIMES A DAY
     Route: 065
     Dates: start: 20220216
  7. DOXAZOSIN [Concomitant]
     Active Substance: DOXAZOSIN MESYLATE
     Indication: Ill-defined disorder
     Dosage: 1 DOSAGE FORM, ONCE A DAY (BOOK BLOOD TES)
     Route: 065
     Dates: start: 20220216
  8. DOXAZOSIN [Concomitant]
     Active Substance: DOXAZOSIN MESYLATE
     Indication: Hypertension
  9. EZETIMIBE [Concomitant]
     Active Substance: EZETIMIBE
     Indication: Ill-defined disorder
     Dosage: 1 DOSAGE FORM, ONCE A DAY
     Route: 065
     Dates: start: 20220216
  10. GABAPENTIN [Concomitant]
     Active Substance: GABAPENTIN
     Indication: Ill-defined disorder
     Dosage: ONE TO BE TAKEN THREE TIMES DAILY  NERVE PAIN
     Route: 065
     Dates: start: 20220216, end: 20220517
  11. BUTYLSCOPOLAMINE BROMIDE [Concomitant]
     Active Substance: BUTYLSCOPOLAMINE BROMIDE
     Indication: Ill-defined disorder
     Dosage: 1-2 FOUR TIMES A DAY BEFORE FOOD WHEN REQUIRED
     Route: 065
     Dates: start: 20220216
  12. HYPROMELLOSES [Concomitant]
     Active Substance: HYPROMELLOSES
     Indication: Ill-defined disorder
     Dosage: 1 DOSAGE FORM, FOUR TIMES/DAY
     Route: 065
     Dates: start: 20220216
  13. HYPROMELLOSES [Concomitant]
     Active Substance: HYPROMELLOSES
     Indication: Dry eye
  14. LACTULOSE [Concomitant]
     Active Substance: LACTULOSE
     Indication: Ill-defined disorder
     Dosage: 15 MILLILITER, TWO TIMES A DAY
     Route: 065
     Dates: start: 20210205
  15. LEVOTHYROXINE [Concomitant]
     Active Substance: LEVOTHYROXINE
     Indication: Ill-defined disorder
     Dosage: 1 DOSAGE FORM, ONCE A DAY (IN THE MORNING 30 MINUTES BEFORE FOOD.)
     Route: 065
     Dates: start: 20220216
  16. LOPERAMIDE [Concomitant]
     Active Substance: LOPERAMIDE
     Indication: Ill-defined disorder
     Dosage: 1 DOSAGE FORM, TWO TIMES A DAY
     Route: 065
     Dates: start: 20220216
  17. LOPERAMIDE [Concomitant]
     Active Substance: LOPERAMIDE
     Indication: Diarrhoea
  18. ESTRIOL [Concomitant]
     Active Substance: ESTRIOL
     Indication: Ill-defined disorder
     Dosage: 1 DOSAGE FORM, TWO TIMES A DAY (AT NIGHT)
     Route: 065
     Dates: start: 20220216
  19. TEMAZEPAM [Concomitant]
     Active Substance: TEMAZEPAM
     Indication: Ill-defined disorder
     Dosage: 1 OR 2  AT NIGHT. HYPNOTIC. POTENTIALLY ADDICTIVE. DO NOT USE REGULARLY
     Route: 065
     Dates: start: 20220503

REACTIONS (1)
  - Confusional state [Recovered/Resolved]

NARRATIVE: CASE EVENT DATE: 20220517
